FAERS Safety Report 4756225-9 (Version None)
Quarter: 2005Q3

REPORT INFORMATION
  Report Type: 
  Country: None (occurrence: None)
  Receive Date: 20050830
  Receipt Date: 20050510
  Transmission Date: 20060218
  Serious: No
  Sender: FDA-Public Use
  Company Number: US-GLAXOSMITHKLINE-A0557946A

PATIENT
  Age: 53 Year
  Sex: Male

DRUGS (3)
  1. WELLBUTRIN XL [Suspect]
     Indication: PANIC ATTACK
     Route: 065
     Dates: start: 20050503
  2. SYNTHROID [Concomitant]
  3. ACIPHEX [Concomitant]

REACTIONS (2)
  - FATIGUE [None]
  - LETHARGY [None]
